FAERS Safety Report 16395493 (Version 1)
Quarter: 2019Q2

REPORT INFORMATION
  Report Type: Spontaneous
  Country: ES (occurrence: ES)
  Receive Date: 20190605
  Receipt Date: 20190605
  Transmission Date: 20190711
  Serious: Yes (Other)
  Sender: FDA-Public Use
  Company Number: ES-MYLANLABS-2019M1051455

PATIENT
  Sex: Male

DRUGS (1)
  1. ATOVACUONA/HIDROCLORURO DE PROGUANIL MYLAN 250 MG/100 MG COMPRIMIDOS [Suspect]
     Active Substance: ATOVAQUONE\PROGUANIL
     Indication: PROPHYLAXIS
     Dosage: UNK
     Route: 048
     Dates: start: 20180920, end: 20180929

REACTIONS (1)
  - Agranulocytosis [Recovered/Resolved]

NARRATIVE: CASE EVENT DATE: 20181005
